FAERS Safety Report 21242397 (Version 1)
Quarter: 2022Q3

REPORT INFORMATION
  Report Type: Spontaneous
  Country: US (occurrence: US)
  Receive Date: 20220823
  Receipt Date: 20220823
  Transmission Date: 20221026
  Serious: No
  Sender: FDA-Public Use
  Company Number: US-NOVARTISTESTPH-NVSC2022US187465

PATIENT
  Sex: Female

DRUGS (1)
  1. TRIFLURIDINE [Suspect]
     Active Substance: TRIFLURIDINE
     Indication: Product used for unknown indication
     Dosage: 1 %, TID (7.5 ML)
     Route: 065
     Dates: start: 202204

REACTIONS (2)
  - Product leakage [Unknown]
  - Wrong technique in product usage process [Unknown]
